FAERS Safety Report 8422936-7 (Version None)
Quarter: 2012Q2

REPORT INFORMATION
  Report Type: 
  Country: None (occurrence: None)
  Receive Date: 20120608
  Receipt Date: 20120529
  Transmission Date: 20120825
  Serious: No
  Sender: FDA-Public Use
  Company Number: JP-GLAXOSMITHKLINE-B0798809A

PATIENT
  Sex: Female

DRUGS (22)
  1. PROMACTA [Suspect]
     Indication: IDIOPATHIC THROMBOCYTOPENIC PURPURA
     Dosage: 12.5MG PER DAY
     Route: 048
     Dates: start: 20110322, end: 20110529
  2. PREDNISOLONE [Suspect]
     Dosage: 7MG PER DAY
     Route: 048
     Dates: start: 20110808, end: 20110904
  3. ZANTAC [Concomitant]
     Dosage: 150MG PER DAY
     Route: 048
  4. PREDNISOLONE [Suspect]
     Dosage: 6MG PER DAY
     Route: 048
     Dates: start: 20110905, end: 20120112
  5. LANSOPRAZOLE [Suspect]
     Dosage: 200MG PER DAY
     Route: 048
     Dates: start: 20111114, end: 20120304
  6. PREDNISOLONE [Suspect]
     Dosage: 22.5MG PER DAY
     Route: 048
     Dates: start: 20110411, end: 20110424
  7. PREDNISOLONE [Suspect]
     Dosage: 15MG PER DAY
     Route: 048
     Dates: start: 20110509, end: 20110605
  8. LANSOPRAZOLE [Suspect]
     Dosage: 100MG PER DAY
     Route: 048
     Dates: start: 20120305
  9. RISEDRONATE SODIUM [Concomitant]
     Dosage: 17.5MG PER DAY
     Route: 048
     Dates: start: 20110523
  10. PREDNISOLONE [Suspect]
     Indication: IDIOPATHIC THROMBOCYTOPENIC PURPURA
     Dosage: 30MG PER DAY
     Route: 048
     Dates: end: 20110327
  11. PROMACTA [Suspect]
     Dosage: 25MG PER DAY
     Route: 048
     Dates: start: 20110530
  12. PREDNISOLONE [Suspect]
     Dosage: 12MG PER DAY
     Route: 048
     Dates: start: 20110606, end: 20110619
  13. PREDNISOLONE [Suspect]
     Dosage: 10MG PER DAY
     Route: 048
     Dates: start: 20110620, end: 20110703
  14. PREDNISOLONE [Suspect]
     Dosage: 5MG PER DAY
     Route: 048
     Dates: start: 20120113
  15. PREDNISOLONE [Suspect]
     Dosage: 9MG PER DAY
     Route: 048
     Dates: start: 20110704, end: 20110807
  16. LANSOPRAZOLE [Suspect]
     Indication: IDIOPATHIC THROMBOCYTOPENIC PURPURA
     Dosage: 100MG PER DAY
     Route: 048
     Dates: start: 20110905, end: 20111113
  17. FLOMOX [Concomitant]
     Dosage: 300MG PER DAY
     Route: 048
     Dates: start: 20110712, end: 20110714
  18. LOXONIN [Concomitant]
     Dosage: 180MG PER DAY
     Route: 048
     Dates: start: 20110706, end: 20110721
  19. PREDNISOLONE [Suspect]
     Dosage: 25MG PER DAY
     Route: 048
     Dates: start: 20110328, end: 20110410
  20. LEVOFLOXACIN [Concomitant]
     Dosage: 500MG PER DAY
     Route: 048
     Dates: start: 20110706, end: 20110708
  21. PREDNISOLONE [Suspect]
     Dosage: 20MG PER DAY
     Route: 048
     Dates: start: 20110425, end: 20110508
  22. MEIACT [Concomitant]
     Dosage: 600MG PER DAY
     Route: 048
     Dates: start: 20110715, end: 20110721

REACTIONS (1)
  - LIVER DISORDER [None]
